FAERS Safety Report 18957025 (Version 1)
Quarter: 2021Q1

REPORT INFORMATION
  Report Type: Spontaneous
  Country: AU (occurrence: AU)
  Receive Date: 20210302
  Receipt Date: 20210302
  Transmission Date: 20210420
  Serious: Yes (Other)
  Sender: FDA-Public Use
  Company Number: AU-ROCHE-2773248

PATIENT
  Age: 39 Year
  Sex: Female

DRUGS (1)
  1. AVASTIN [Suspect]
     Active Substance: BEVACIZUMAB
     Indication: OVARIAN CLEAR CELL CARCINOMA
     Route: 065

REACTIONS (7)
  - Lymphoma [Unknown]
  - Gastrointestinal disorder [Unknown]
  - Hepatic cancer [Unknown]
  - Feeling abnormal [Unknown]
  - Neuralgia [Unknown]
  - Gait disturbance [Unknown]
  - Drug ineffective [Unknown]
